FAERS Safety Report 10546647 (Version 1)
Quarter: 2014Q4

REPORT INFORMATION
  Report Type: Spontaneous
  Country: US (occurrence: US)
  Receive Date: 20141027
  Receipt Date: 20141027
  Transmission Date: 20150529
  Serious: No
  Sender: FDA-Public Use
  Company Number: US-ABBVIE-14P-163-1230886-00

PATIENT
  Age: 44 Year
  Sex: Female
  Weight: 59.02 kg

DRUGS (3)
  1. LUPRON DEPOT [Suspect]
     Active Substance: LEUPROLIDE ACETATE
     Indication: ENDOMETRIOSIS
     Route: 030
     Dates: start: 20140221
  2. CYCLOBENZAPRINE [Concomitant]
     Active Substance: CYCLOBENZAPRINE
     Indication: MUSCLE RELAXANT THERAPY
  3. PROZAC [Concomitant]
     Active Substance: FLUOXETINE HYDROCHLORIDE
     Indication: DEPRESSION

REACTIONS (4)
  - Constipation [Not Recovered/Not Resolved]
  - Hot flush [Not Recovered/Not Resolved]
  - Aggression [Not Recovered/Not Resolved]
  - Irritability [Not Recovered/Not Resolved]

NARRATIVE: CASE EVENT DATE: 201403
